FAERS Safety Report 25947122 (Version 1)
Quarter: 2025Q4

REPORT INFORMATION
  Report Type: Spontaneous
  Country: US (occurrence: US)
  Receive Date: 20251022
  Receipt Date: 20251022
  Transmission Date: 20260117
  Serious: Yes (Hospitalization, Other)
  Sender: CATALENT PHARMA SOLUTIONS
  Company Number: US-CATALENT PHARMA SOLUTIONS-CAT-001424-2025

PATIENT
  Age: 14 Year
  Sex: Male

DRUGS (3)
  1. VALPROIC ACID [Suspect]
     Active Substance: VALPROIC ACID
     Indication: Seizure
     Dosage: 1000 MG TWICE A DAY
     Route: 065
  2. CLONAZEPAM [Concomitant]
     Active Substance: CLONAZEPAM
     Dosage: 2 MG DAILY
     Route: 065
  3. CARBAMAZEPINE [Concomitant]
     Active Substance: CARBAMAZEPINE
     Dosage: 200 MG TWICE A DAY
     Route: 065

REACTIONS (3)
  - Orbital haematoma [Not Recovered/Not Resolved]
  - Von Willebrand^s disease [Recovering/Resolving]
  - Labelled drug-drug interaction medication error [Recovered/Resolved]
